FAERS Safety Report 6047364-3 (Version None)
Quarter: 2009Q1

REPORT INFORMATION
  Report Type: 
  Country: None (occurrence: None)
  Receive Date: 20090122
  Receipt Date: 20090113
  Transmission Date: 20090719
  Serious: Yes (Hospitalization, Other)
  Sender: FDA-Public Use
  Company Number: DE-MERCK-0901DEU00114

PATIENT
  Age: 86 Year
  Sex: Male

DRUGS (11)
  1. FOSAMAX [Suspect]
     Indication: METASTASES TO BONE
     Route: 048
     Dates: start: 20040101, end: 20080814
  2. ASPIRIN TAB [Suspect]
     Indication: CORONARY ARTERY DISEASE
     Route: 048
     Dates: start: 20080802, end: 20080814
  3. CLOPIDOGREL BISULFATE [Suspect]
     Indication: STENT PLACEMENT
     Route: 048
     Dates: start: 20080401, end: 20080814
  4. METOPROLOL SUCCINATE [Concomitant]
     Indication: HYPERTENSION
     Route: 048
     Dates: end: 20080814
  5. CALCIUM CARBONATE AND CHOLECALCIFEROL [Concomitant]
     Indication: METASTASES TO BONE
     Route: 048
  6. RAMIPRIL [Concomitant]
     Indication: HYPERTENSION
     Route: 048
     Dates: end: 20080814
  7. POLYETHYLENE GLYCOL 3350 AND POTASSIUM CHLORIDE AND SODIUM BICARBONATE [Concomitant]
     Indication: CONSTIPATION
     Route: 048
  8. PANTOPRAZOLE SODIUM [Concomitant]
     Indication: COLITIS
     Route: 041
     Dates: start: 20080707, end: 20080818
  9. PANTOPRAZOLE SODIUM [Concomitant]
     Route: 048
     Dates: start: 20080819
  10. FUROSEMIDE AND SPIRONOLACTONE [Concomitant]
     Indication: HYPERTENSION
     Route: 048
     Dates: end: 20080814
  11. ZOLEDRONIC ACID [Concomitant]
     Indication: METASTASES TO BONE
     Route: 041
     Dates: start: 20040101

REACTIONS (6)
  - ANAEMIA [None]
  - CORONARY ARTERY DISEASE [None]
  - INAPPROPRIATE SCHEDULE OF DRUG ADMINISTRATION [None]
  - INTERNATIONAL NORMALISED RATIO INCREASED [None]
  - OSTEOARTHRITIS [None]
  - UPPER GASTROINTESTINAL HAEMORRHAGE [None]
